FAERS Safety Report 10096488 (Version 3)
Quarter: 2015Q3

REPORT INFORMATION
  Report Type: Spontaneous
  Country: US (occurrence: US)
  Receive Date: 20140422
  Receipt Date: 20150813
  Transmission Date: 20151125
  Serious: No
  Sender: FDA-Public Use
  Company Number: US-GILEAD-2013-0067566

PATIENT
  Age: 5 Year
  Sex: Male

DRUGS (1)
  1. LETAIRIS [Suspect]
     Active Substance: AMBRISENTAN
     Indication: COR PULMONALE CHRONIC
     Dosage: 1.25 MG, QD
     Route: 048
     Dates: start: 20120719

REACTIONS (2)
  - Pyrexia [Recovered/Resolved]
  - Nasopharyngitis [Recovered/Resolved]
